FAERS Safety Report 14450986 (Version 2)
Quarter: 2018Q2

REPORT INFORMATION
  Report Type: Spontaneous
  Country: US (occurrence: US)
  Receive Date: 20180129
  Receipt Date: 20180419
  Transmission Date: 20180711
  Serious: No
  Sender: FDA-Public Use
  Company Number: US-PFIZER INC-2016595034

PATIENT
  Age: 41 Year
  Sex: Female
  Weight: 68.4 kg

DRUGS (3)
  1. CELEXA [Concomitant]
     Active Substance: CITALOPRAM HYDROBROMIDE
  2. LYRICA [Suspect]
     Active Substance: PREGABALIN
     Indication: FIBROMYALGIA
     Dosage: 150 MG, 3X/DAY
     Route: 048
     Dates: start: 2014
  3. DEPO ESTRADIOL [Concomitant]
     Dosage: UNK

REACTIONS (4)
  - Oropharyngeal pain [Recovering/Resolving]
  - Dysphonia [Recovering/Resolving]
  - Pyrexia [Recovered/Resolved]
  - Influenza [Recovering/Resolving]

NARRATIVE: CASE EVENT DATE: 20180119
